FAERS Safety Report 8951446 (Version 2)
Quarter: 2012Q4

REPORT INFORMATION
  Report Type: Spontaneous
  Country: IT (occurrence: None)
  Receive Date: 20121129
  Receipt Date: 20121205
  Transmission Date: 20130627
  Serious: Yes (Other)
  Sender: FDA-Public Use
  Company Number: AUR-APL-2012-05083

PATIENT
  Age: 80 Year
  Sex: Male

DRUGS (6)
  1. METFORMIN (METFORMIN) [Suspect]
     Indication: DRUG USE FOR UNKNOWN INDICATION
     Route: 048
     Dates: start: 20110806, end: 20120805
  2. CELEBREX (CELECOXIB) [Concomitant]
  3. CARDIOASPIRIN (ACETYLSALICYLIC ACID) [Concomitant]
  4. ISOSORBIDE MONONITRATE [Concomitant]
  5. FUROSEMIDE [Concomitant]
  6. SIMVASTATIN [Concomitant]

REACTIONS (1)
  - Blood glucose decreased [None]
